FAERS Safety Report 9610403 (Version 5)
Quarter: 2013Q4

REPORT INFORMATION
  Report Type: Spontaneous
  Country: JP (occurrence: JP)
  Receive Date: 20131009
  Receipt Date: 20131121
  Transmission Date: 20140711
  Serious: Yes (Hospitalization)
  Sender: FDA-Public Use
  Company Number: JP-PFIZER INC-2013252460

PATIENT
  Age: 72 Year
  Sex: Male
  Weight: 67 kg

DRUGS (9)
  1. SELARA [Suspect]
     Indication: HYPERTENSION
     Dosage: 25 MG, 2X/DAY
     Route: 048
     Dates: start: 20130808, end: 20130829
  2. SELARA [Suspect]
     Indication: PRIMARY HYPERALDOSTERONISM
  3. ARTIST [Suspect]
     Indication: ANGINA PECTORIS
     Dosage: 5 MG, 1X/DAY
     Route: 048
     Dates: start: 2001, end: 20130829
  4. ARTIST [Suspect]
     Dosage: 5 MG, 1X/DAY
     Dates: start: 20130903
  5. AMLODIPINE OD [Concomitant]
     Indication: HYPERTENSION
     Dosage: 5 MG, 1X/DAY
     Route: 048
     Dates: start: 2001, end: 20130829
  6. AMLODIPINE OD [Concomitant]
     Dosage: 2.5 MG, 1X/DAY
     Route: 048
     Dates: start: 20130830
  7. DILTIAZEM HYDROCHLORIDE [Concomitant]
     Indication: ANGINA PECTORIS
     Dosage: 100 MG, 1X/DAY
     Route: 048
     Dates: start: 2001, end: 20130829
  8. BAYASPIRIN [Concomitant]
     Indication: ANGINA PECTORIS
     Dosage: 100 MG, 1X/DAY
     Route: 048
     Dates: start: 2001
  9. ATORVASTATIN [Concomitant]
     Indication: DYSLIPIDAEMIA
     Dosage: 10 MG, 1X/DAY
     Route: 048
     Dates: start: 2001

REACTIONS (4)
  - Dehydration [Recovering/Resolving]
  - Acute prerenal failure [Recovering/Resolving]
  - Hyperkalaemia [Recovered/Resolved]
  - Bradycardia [Recovered/Resolved]
